FAERS Safety Report 4446538-2 (Version None)
Quarter: 2004Q3

REPORT INFORMATION
  Report Type: 
  Country: None (occurrence: None)
  Receive Date: 20040908
  Receipt Date: 20040824
  Transmission Date: 20050211
  Serious: Yes (Hospitalization)
  Sender: FDA-Public Use
  Company Number: 2004230285DE

PATIENT
  Age: 53 Year
  Sex: Male

DRUGS (13)
  1. ZYVOX [Suspect]
     Indication: ENDOCARDITIS
     Dosage: 600 MG, BID, IV
     Route: 042
     Dates: start: 20040820
  2. PANTOPRAZOLE [Concomitant]
  3. COTRIMOXAZOL [Concomitant]
  4. AMPHOTERICIN B [Concomitant]
  5. AMPHO-MORONA [Concomitant]
  6. PANCREATIC ENZYME SUBSTITUTE [Concomitant]
  7. IRON SUBSTITUTE [Concomitant]
  8. CALCIUM SUBSTITUTE [Concomitant]
  9. BISOPROLOL FUMARATE [Concomitant]
  10. VANCOMYCIN [Concomitant]
  11. RIFAMPICIN [Concomitant]
  12. CLINDAMYCIN [Concomitant]
  13. CEFOTAXIME SODIUM [Concomitant]

REACTIONS (4)
  - BLOOD CALCITONIN DECREASED [None]
  - CONDITION AGGRAVATED [None]
  - ECHOCARDIOGRAM ABNORMAL [None]
  - RENAL FAILURE [None]
